FAERS Safety Report 23325503 (Version 2)
Quarter: 2024Q1

REPORT INFORMATION
  Report Type: Spontaneous
  Country: US (occurrence: US)
  Receive Date: 20231221
  Receipt Date: 20240110
  Transmission Date: 20240410
  Serious: No
  Sender: FDA-Public Use
  Company Number: US-BIOVITRUM-2023-US-020028

PATIENT
  Age: 12 Month
  Sex: Male
  Weight: 10.9 kg

DRUGS (2)
  1. SYNAGIS [Suspect]
     Active Substance: PALIVIZUMAB
     Indication: Coarctation of the aorta
     Dosage: 15 MG/KG, MONTHLY
     Route: 030
     Dates: start: 202311
  2. SYNAGIS [Suspect]
     Active Substance: PALIVIZUMAB
     Indication: Hypoplastic left heart syndrome

REACTIONS (2)
  - Respiratory syncytial virus infection [Unknown]
  - Ear infection [Unknown]
